FAERS Safety Report 18493251 (Version 2)
Quarter: 2020Q4

REPORT INFORMATION
  Report Type: Spontaneous
  Country: US (occurrence: US)
  Receive Date: 20201111
  Receipt Date: 20201224
  Transmission Date: 20210114
  Serious: Yes (Other)
  Sender: FDA-Public Use
  Company Number: US-TAKEDA-2020TUS044335

PATIENT
  Age: 67 Year
  Sex: Female
  Weight: 73.92 kg

DRUGS (17)
  1. TRAZODONE [Concomitant]
     Active Substance: TRAZODONE HYDROCHLORIDE
  2. ACIDOPHILUS [Concomitant]
     Active Substance: LACTOBACILLUS ACIDOPHILUS
  3. CINNAMON [CINNAMOMUM VERUM] [Concomitant]
  4. CUVITRU [Suspect]
     Active Substance: HUMAN IMMUNOGLOBULIN G
     Indication: PRODUCT USED FOR UNKNOWN INDICATION
     Dosage: 20 GRAM, Q2WEEKS
     Route: 058
     Dates: start: 20200219
  5. SINGULAIR [Concomitant]
     Active Substance: MONTELUKAST SODIUM
  6. EPINEPHRINE. [Concomitant]
     Active Substance: EPINEPHRINE
  7. LMX4 [Concomitant]
     Active Substance: LIDOCAINE
  8. IODINE. [Concomitant]
     Active Substance: IODINE
  9. VITAMIN B12 [Concomitant]
     Active Substance: CYANOCOBALAMIN
  10. VITAMIN D3 [Concomitant]
     Active Substance: CHOLECALCIFEROL
  11. OMEGA 3 [FISH OIL] [Concomitant]
     Active Substance: FISH OIL
  12. ALPHA LIPOIC ACID [Concomitant]
     Active Substance: .ALPHA.-LIPOIC ACID
  13. LECITHIN [Concomitant]
     Active Substance: LECITHIN
  14. ACETAMINOPHEN. [Concomitant]
     Active Substance: ACETAMINOPHEN
  15. DIPHENHYDRAMINE. [Concomitant]
     Active Substance: DIPHENHYDRAMINE
  16. METFORMIN [Concomitant]
     Active Substance: METFORMIN HYDROCHLORIDE
  17. AMINO ACIDS NOS [Concomitant]
     Active Substance: AMINO ACIDS, SOURCE UNSPECIFIED

REACTIONS (2)
  - Sinusitis [Unknown]
  - Autoimmune thyroiditis [Unknown]

NARRATIVE: CASE EVENT DATE: 20201201
